FAERS Safety Report 23530012 (Version 2)
Quarter: 2024Q1

REPORT INFORMATION
  Report Type: Report from Study
  Country: US (occurrence: US)
  Receive Date: 20240216
  Receipt Date: 20240319
  Transmission Date: 20240409
  Serious: Yes (Other)
  Sender: FDA-Public Use
  Company Number: US-TAKEDA-2024TUS013211

PATIENT
  Age: 54 Year
  Sex: Female
  Weight: 67.347 kg

DRUGS (2)
  1. BRIGATINIB [Suspect]
     Active Substance: BRIGATINIB
     Indication: Lung neoplasm malignant
     Dosage: 120 MILLIGRAM, QD
     Route: 048
     Dates: start: 20231201
  2. BRIGATINIB [Suspect]
     Active Substance: BRIGATINIB
     Dosage: 180 MILLIGRAM, QD
     Route: 048

REACTIONS (6)
  - Lung neoplasm malignant [Unknown]
  - Pulmonary oedema [Unknown]
  - Pneumothorax [Unknown]
  - Dizziness [Unknown]
  - Dyspnoea [Unknown]
  - Drug interaction [Unknown]

NARRATIVE: CASE EVENT DATE: 20240201
